FAERS Safety Report 21777343 (Version 1)
Quarter: 2022Q4

REPORT INFORMATION
  Report Type: Spontaneous
  Country: US (occurrence: US)
  Receive Date: 20221226
  Receipt Date: 20221226
  Transmission Date: 20230113
  Serious: No
  Sender: FDA-Public Use
  Company Number: US-COLLEGIUM PHARMACEUTICAL, INC.-2022CGM00348

PATIENT
  Age: 24 Year
  Sex: Female

DRUGS (2)
  1. TAPENTADOL [Suspect]
     Active Substance: TAPENTADOL
  2. ULTRAM [Suspect]
     Active Substance: TRAMADOL HYDROCHLORIDE

REACTIONS (4)
  - Drug intolerance [Unknown]
  - Drug hypersensitivity [Unknown]
  - Dizziness [Unknown]
  - Nausea [Unknown]

NARRATIVE: CASE EVENT DATE: 20191217
